FAERS Safety Report 15249904 (Version 2)
Quarter: 2018Q3

REPORT INFORMATION
  Report Type: Spontaneous
  Country: CH (occurrence: CH)
  Receive Date: 20180807
  Receipt Date: 20180817
  Transmission Date: 20181010
  Serious: Yes (Hospitalization, Other)
  Sender: FDA-Public Use
  Company Number: CH-PFIZER INC-2018308573

PATIENT
  Age: 46 Year
  Sex: Male

DRUGS (10)
  1. NOVALGIN (METAMIZOLE SODIUM) [Interacting]
     Active Substance: METAMIZOLE SODIUM
     Indication: ANALGESIC THERAPY
     Dosage: 500 MG, AS NEEDED
     Route: 048
     Dates: start: 20180424, end: 20180606
  2. XARELTO [Concomitant]
     Active Substance: RIVAROXABAN
     Dosage: 10 MG, UNK
     Route: 048
     Dates: start: 20180509
  3. PANTOPRAZOL [Concomitant]
     Active Substance: PANTOPRAZOLE SODIUM
     Dosage: 40 MG, UNK
     Route: 048
     Dates: start: 20180424, end: 20180620
  4. TRIUMEQ [Concomitant]
     Active Substance: ABACAVIR SULFATE\DOLUTEGRAVIR SODIUM\LAMIVUDINE
     Dosage: 1 DF, UNK
     Route: 048
     Dates: start: 20180504
  5. CLEXANE [Concomitant]
     Active Substance: ENOXAPARIN SODIUM
     Dosage: 1 DF, UNK
     Dates: start: 20180424, end: 20180430
  6. TARGIN [Concomitant]
     Active Substance: NALOXONE HYDROCHLORIDE\OXYCODONE HYDROCHLORIDE
     Dosage: 1 DF(10MG/5MG), UNK
     Route: 048
     Dates: start: 20180502, end: 20180703
  7. PRIMPERAN [Concomitant]
     Active Substance: METOCLOPRAMIDE HYDROCHLORIDE
     Dosage: 1 DF, UNK
     Dates: start: 20180424, end: 20180607
  8. MYCOBUTIN [Suspect]
     Active Substance: RIFABUTIN
     Indication: STAPHYLOCOCCAL INFECTION
     Dosage: 150 MG, 3X/DAY (0?0?3)
     Route: 048
     Dates: start: 20180601, end: 20180608
  9. CIPROXIN /00697201/ [Interacting]
     Active Substance: CIPROFLOXACIN
     Indication: STAPHYLOCOCCAL INFECTION
     Dosage: 750 MG, 2X/DAY
     Route: 048
     Dates: start: 20180531, end: 20180608
  10. IRFEN [Concomitant]
     Active Substance: IBUPROFEN
     Dosage: 400 MG, UNK
     Dates: start: 20180424, end: 20180501

REACTIONS (3)
  - Drug interaction [Recovered/Resolved]
  - Rash generalised [Recovered/Resolved]
  - Pancytopenia [Recovered/Resolved]

NARRATIVE: CASE EVENT DATE: 20180531
